FAERS Safety Report 7915185-X (Version None)
Quarter: 2011Q4

REPORT INFORMATION
  Report Type: 
  Country: None (occurrence: None)
  Receive Date: 20111115
  Receipt Date: 20111108
  Transmission Date: 20120403
  Serious: Yes (Other)
  Sender: FDA-Public Use
  Company Number: DE-JNJFOC-20111104869

PATIENT
  Sex: Male

DRUGS (3)
  1. XARELTO [Suspect]
     Indication: KNEE ARTHROPLASTY
     Route: 065
     Dates: start: 20111025, end: 20111026
  2. FRAXIPARIN [Concomitant]
     Dates: end: 20111024
  3. MARCUMAR [Concomitant]

REACTIONS (1)
  - THROMBOSIS [None]
